FAERS Safety Report 14263694 (Version 3)
Quarter: 2018Q1

REPORT INFORMATION
  Report Type: Spontaneous
  Country: US (occurrence: US)
  Receive Date: 20171208
  Receipt Date: 20180206
  Transmission Date: 20180508
  Serious: Yes (Other)
  Sender: FDA-Public Use
  Company Number: US-PFIZER INC-2017521050

PATIENT
  Age: 82 Year
  Sex: Female
  Weight: 68.95 kg

DRUGS (5)
  1. XANAX XR [Suspect]
     Active Substance: ALPRAZOLAM
     Indication: PANIC DISORDER
     Dosage: 0.5 MG, 3X/DAY
     Route: 048
     Dates: end: 20171130
  2. XANAX XR [Suspect]
     Active Substance: ALPRAZOLAM
     Indication: ANXIETY
     Dosage: 1.75 MG, DAILY (0.5MG IN THE MORNING, AFTERNOON THEN 0.5MG + A 0.25MG FOR A TOTAL OF 0.75MG AT NIGHT
     Dates: start: 20180124
  3. FETZIMA [Concomitant]
     Active Substance: LEVOMILNACIPRAN HYDROCHLORIDE
     Indication: DEPRESSION
     Dosage: 20 MG, 1X/DAY
     Route: 048
     Dates: start: 20171105
  4. DEPLIN [Concomitant]
     Active Substance: LEVOMEFOLATE CALCIUM
     Indication: FOLATE DEFICIENCY
     Dosage: 15 MG, 1X/DAY
     Route: 048
     Dates: start: 20171028
  5. EFFEXOR XR [Concomitant]
     Active Substance: VENLAFAXINE HYDROCHLORIDE
     Indication: DEPRESSION
     Dosage: 150 MG, 1X/DAY
     Route: 048

REACTIONS (10)
  - Spondylitis [Not Recovered/Not Resolved]
  - Somnolence [Unknown]
  - Body height decreased [Not Recovered/Not Resolved]
  - Cerebral haemorrhage [Unknown]
  - Fall [Unknown]
  - Intervertebral disc degeneration [Not Recovered/Not Resolved]
  - Malaise [Unknown]
  - Concussion [Unknown]
  - Sleep disorder [Not Recovered/Not Resolved]
  - Wrong technique in product usage process [Unknown]

NARRATIVE: CASE EVENT DATE: 201701
